FAERS Safety Report 8000356-7 (Version None)
Quarter: 2011Q4

REPORT INFORMATION
  Report Type: 
  Country: None (occurrence: None)
  Receive Date: 20111222
  Receipt Date: 20111213
  Transmission Date: 20120403
  Serious: Yes (Hospitalization)
  Sender: FDA-Public Use
  Company Number: US-BAYER-2011-040587

PATIENT
  Age: 18 Year
  Sex: Female
  Weight: 82 kg

DRUGS (15)
  1. YAZ [Suspect]
     Indication: MENORRHAGIA
     Dosage: UNK
     Dates: start: 20110105, end: 20110601
  2. PAROXETINE HCL [Concomitant]
     Dosage: UNK
     Dates: start: 20090501
  3. ALBUTEROL [Concomitant]
     Indication: ASTHMA
     Dosage: 90 MCG 1-2 PUFFS EVERY 4-6 HOURS  PRN
     Route: 045
     Dates: start: 20030101
  4. YASMIN [Suspect]
     Indication: ACNE
  5. LEVAQUIN [Concomitant]
     Dosage: UNK
     Dates: start: 20090501
  6. YASMIN [Suspect]
     Indication: CONTRACEPTION
     Dosage: UNK
     Dates: start: 20100810
  7. TRAMADOL HCL [Concomitant]
     Dosage: UNK
     Dates: start: 20090501
  8. IBUPROFEN [Concomitant]
     Dosage: 800 MG, TID, 3-5 DAYS
     Route: 048
     Dates: start: 20090101
  9. PAXIL [Concomitant]
     Dosage: UNK
     Dates: start: 20090501
  10. YAZ [Suspect]
     Indication: UTERINE SPASM
  11. LORATADINE [Concomitant]
     Dosage: UNK
     Dates: start: 20090501
  12. YAZ [Suspect]
     Indication: CONTRACEPTION
     Dosage: UNK
     Dates: start: 20071001, end: 20080601
  13. YASMIN [Suspect]
     Indication: PREMENSTRUAL SYNDROME
  14. YAZ [Suspect]
     Indication: ACNE
     Dosage: UNK
     Dates: start: 20090301, end: 20090801
  15. YAZ [Suspect]
     Indication: PREMENSTRUAL SYNDROME
     Dosage: UNK
     Dates: start: 20100608, end: 20100801

REACTIONS (5)
  - GALLBLADDER DISORDER [None]
  - CHOLECYSTITIS CHRONIC [None]
  - ANXIETY [None]
  - PAIN [None]
  - ABDOMINAL PAIN [None]
